FAERS Safety Report 19726035 (Version 1)
Quarter: 2021Q3

REPORT INFORMATION
  Report Type: Spontaneous
  Country: US (occurrence: US)
  Receive Date: 20210819
  Receipt Date: 20210819
  Transmission Date: 20211014
  Serious: No
  Sender: FDA-Public Use
  Company Number: US-MANNKIND CORPORATION-2020MK000141

PATIENT
  Age: 69 Year
  Sex: Male

DRUGS (4)
  1. AFREZZA [Suspect]
     Active Substance: INSULIN HUMAN
     Indication: TYPE 1 DIABETES MELLITUS
     Dates: start: 202010
  2. NOVOLOG [Concomitant]
     Active Substance: INSULIN ASPART
     Dates: start: 2018
  3. TRESIBA [Concomitant]
     Active Substance: INSULIN DEGLUDEC
     Indication: TYPE 1 DIABETES MELLITUS
  4. AFREZZA [Suspect]
     Active Substance: INSULIN HUMAN
     Dates: start: 202010

REACTIONS (4)
  - Blood glucose increased [Unknown]
  - Expired device used [Unknown]
  - Product dose omission in error [Unknown]
  - Device occlusion [Unknown]

NARRATIVE: CASE EVENT DATE: 2020
